FAERS Safety Report 16313195 (Version 2)
Quarter: 2020Q4

REPORT INFORMATION
  Report Type: Spontaneous
  Country: GB (occurrence: GB)
  Receive Date: 20190515
  Receipt Date: 20201022
  Transmission Date: 20210113
  Serious: Yes (Other)
  Sender: FDA-Public Use
  Company Number: GB-SA-2019SA127795

PATIENT

DRUGS (1)
  1. STILNOCT [Suspect]
     Active Substance: ZOLPIDEM TARTRATE

REACTIONS (10)
  - Abdominal pain upper [Unknown]
  - Feeling jittery [Unknown]
  - Heart rate increased [Unknown]
  - Drug ineffective [Unknown]
  - Restlessness [Unknown]
  - Product use issue [Unknown]
  - Hyperthyroidism [Unknown]
  - Agitation [Unknown]
  - Product taste abnormal [Unknown]
  - Anxiety [Unknown]
